FAERS Safety Report 7714724-1 (Version None)
Quarter: 2011Q3

REPORT INFORMATION
  Report Type: 
  Country: None (occurrence: None)
  Receive Date: 20110804
  Receipt Date: 20100611
  Transmission Date: 20111222
  Serious: Yes (Hospitalization)
  Sender: FDA-Public Use
  Company Number: DSU-2010-02700

PATIENT
  Sex: Female

DRUGS (3)
  1. BENICAR HCT [Suspect]
     Indication: PRODUCT USED FOR UNKNOWN INDICATION
     Dosage: PER ORAL ; 20/6.25MG (HALF OF A 40/12.5MG TABLET),PER ORAL;
     Route: 048
     Dates: start: 20100101, end: 20100101
  2. BENICAR HCT [Suspect]
     Indication: PRODUCT USED FOR UNKNOWN INDICATION
     Dosage: PER ORAL ; 20/6.25MG (HALF OF A 40/12.5MG TABLET),PER ORAL;
     Route: 048
     Dates: end: 20100101
  3. CRETOR (ROSUVASTATIN  CALCIUM) (ROSUVASTATIN CALCIUM) [Concomitant]

REACTIONS (4)
  - CHEST PAIN [None]
  - DRUG ADMINISTRATION ERROR [None]
  - COUGH [None]
  - DYSPNOEA [None]
